FAERS Safety Report 5880157-6 (Version None)
Quarter: 2008Q3

REPORT INFORMATION
  Report Type: 
  Country: None (occurrence: None)
  Receive Date: 20080912
  Receipt Date: 20080903
  Transmission Date: 20090109
  Serious: Yes (Other)
  Sender: FDA-Public Use
  Company Number: US-BAYER-200832777NA

PATIENT
  Age: 48 Year
  Sex: Male
  Weight: 83 kg

DRUGS (1)
  1. MAGNEVIST [Suspect]
     Indication: NUCLEAR MAGNETIC RESONANCE IMAGING BRAIN
     Dosage: TOTAL DAILY DOSE: 18 ML  UNIT DOSE: 100 ML
     Route: 042
     Dates: start: 20080903, end: 20080903

REACTIONS (6)
  - BREATH SOUNDS ABNORMAL [None]
  - BREATH SOUNDS ABSENT [None]
  - DYSPNOEA [None]
  - FLUSHING [None]
  - SNEEZING [None]
  - URTICARIA [None]
